FAERS Safety Report 5397996-0 (Version None)
Quarter: 2007Q3

REPORT INFORMATION
  Report Type: 
  Country: None (occurrence: None)
  Receive Date: 20070726
  Receipt Date: 20070719
  Transmission Date: 20080115
  Serious: No
  Sender: FDA-Public Use
  Company Number: US-ASTRAZENECA-2007UW13186

PATIENT
  Age: 56 Year
  Sex: Male
  Weight: 72.3 kg

DRUGS (5)
  1. CRESTOR [Suspect]
     Indication: LOW DENSITY LIPOPROTEIN INCREASED
     Dosage: 5-10 MG
     Route: 048
  2. SERZONE [Concomitant]
  3. ASPIRIN [Concomitant]
  4. ZETIA [Concomitant]
     Indication: LOW DENSITY LIPOPROTEIN INCREASED
  5. BUSPAR [Concomitant]

REACTIONS (1)
  - EPILEPSY [None]
